FAERS Safety Report 13013915 (Version 2)
Quarter: 2017Q1

REPORT INFORMATION
  Report Type: Report from Study
  Country: None (occurrence: FI)
  Receive Date: 20161209
  Receipt Date: 20170124
  Transmission Date: 20170428
  Serious: Yes (Death)
  Sender: FDA-Public Use
  Company Number: FI-ABBVIE-16K-055-1804428-00

PATIENT
  Sex: Male

DRUGS (1)
  1. DUODOPA [Suspect]
     Active Substance: CARBIDOPA\LEVODOPA
     Indication: PARKINSON^S DISEASE
     Dosage: DAY 3.0 ( 8 AM TO 8 PM); NIGHT 1.6 ( 8 PM TO 8 AM)
     Route: 050
     Dates: end: 20161207

REACTIONS (1)
  - Parkinson^s disease [Fatal]
